FAERS Safety Report 21178525 (Version 1)
Quarter: 2022Q3

REPORT INFORMATION
  Report Type: Spontaneous
  Country: US (occurrence: None)
  Receive Date: 20220805
  Receipt Date: 20220805
  Transmission Date: 20221026
  Serious: Yes (Disabling, Other)
  Sender: FDA-Public Use
  Company Number: None

PATIENT
  Age: 12 Year
  Sex: Female
  Weight: 45 kg

DRUGS (1)
  1. MONTELUKAST [Suspect]
     Active Substance: MONTELUKAST SODIUM
     Indication: Asthma
     Dosage: FREQUENCY : DAILY;?
     Route: 048
     Dates: end: 20210315

REACTIONS (6)
  - Abdominal pain upper [None]
  - Weight decreased [None]
  - Self-injurious ideation [None]
  - Decreased appetite [None]
  - Anxiety [None]
  - Antisocial behaviour [None]

NARRATIVE: CASE EVENT DATE: 20201201
